FAERS Safety Report 6360611-3 (Version None)
Quarter: 2009Q3

REPORT INFORMATION
  Report Type: 
  Country: None (occurrence: None)
  Receive Date: 20090915
  Receipt Date: 20090909
  Transmission Date: 20100115
  Serious: Yes (Life-Threatening, Hospitalization, Other)
  Sender: FDA-Public Use
  Company Number: 2009US002819

PATIENT
  Age: 56 Year
  Sex: Male
  Weight: 94.3 kg

DRUGS (32)
  1. ALEFACEPT(ALEFACEPT) INJECTION [Suspect]
     Indication: RENAL TRANSPLANT
     Dosage: 7.5 MG, TOTAL DOSE, IV NOS, 7.5 MG, TOTAL DOSE, IV NOS, 15 MG, WEEKLY, SUBCUTANEOUS
     Route: 042
     Dates: start: 20090709, end: 20090709
  2. ALEFACEPT(ALEFACEPT) INJECTION [Suspect]
     Indication: RENAL TRANSPLANT
     Dosage: 7.5 MG, TOTAL DOSE, IV NOS, 7.5 MG, TOTAL DOSE, IV NOS, 15 MG, WEEKLY, SUBCUTANEOUS
     Route: 042
     Dates: start: 20090712, end: 20090712
  3. ALEFACEPT(ALEFACEPT) INJECTION [Suspect]
     Indication: RENAL TRANSPLANT
     Dosage: 7.5 MG, TOTAL DOSE, IV NOS, 7.5 MG, TOTAL DOSE, IV NOS, 15 MG, WEEKLY, SUBCUTANEOUS
     Route: 042
     Dates: start: 20090716, end: 20090719
  4. PROGRAF [Suspect]
     Indication: RENAL TRANSPLANT
     Dosage: 10 MG, BID, ORAL, 5 MG, BID, ORAL, 6 MG, BID, ORAL
     Route: 048
     Dates: start: 20090710, end: 20090720
  5. PROGRAF [Suspect]
     Indication: RENAL TRANSPLANT
     Dosage: 10 MG, BID, ORAL, 5 MG, BID, ORAL, 6 MG, BID, ORAL
     Route: 048
     Dates: start: 20090724, end: 20090726
  6. PROGRAF [Suspect]
     Indication: RENAL TRANSPLANT
     Dosage: 10 MG, BID, ORAL, 5 MG, BID, ORAL, 6 MG, BID, ORAL
     Route: 048
     Dates: start: 20090726
  7. VALCYTE [Suspect]
     Indication: DRUG USE FOR UNKNOWN INDICATION
     Dosage: 450 MG, Q3D, ORAL
     Route: 048
     Dates: start: 20090709
  8. SYNTHROID [Suspect]
     Indication: DRUG USE FOR UNKNOWN INDICATION
     Dosage: 50 UG, UID/QD, ORAL
     Route: 048
  9. PLAVIX [Suspect]
     Indication: DRUG USE FOR UNKNOWN INDICATION
     Dosage: 75 MG, UID/QD, ORAL
     Route: 048
     Dates: start: 20040101
  10. ASPIRIN [Suspect]
     Indication: DRUG USE FOR UNKNOWN INDICATION
     Dosage: 325 MG, UID/QD, UNK, 81 MG, UID/QD, UNK
  11. BACTRIM [Suspect]
     Indication: URINARY TRACT INFECTION
     Dosage: 1 DF, QOD, ORAL
     Route: 048
     Dates: start: 20090709
  12. HEPARIN [Suspect]
     Indication: DRUG USE FOR UNKNOWN INDICATION
     Dosage: UNK, TID, UNK, UNK, UID/QD, UNK
     Dates: start: 20090710, end: 20090714
  13. HEPARIN [Suspect]
     Indication: DRUG USE FOR UNKNOWN INDICATION
     Dosage: UNK, TID, UNK, UNK, UID/QD, UNK
     Dates: start: 20090715, end: 20090715
  14. PREDNISONE TAB [Concomitant]
  15. AMBIEN (COLPIDEM TARTRATE) [Concomitant]
  16. PRILOSEC [Concomitant]
  17. METOPROLOL TARTRATE [Concomitant]
  18. NORVASC [Concomitant]
  19. LANTUS [Concomitant]
  20. CALCIUM CARBONATE [Concomitant]
  21. DILTIAZEM CD (DILTIAZEM HYDROCHLORIDE) [Concomitant]
  22. FERROUS GLUCONATE (FERROUS GLUCONATE) [Concomitant]
  23. LABETALOL HCL [Concomitant]
  24. NEPHROCAPS (VITAMINS NOS) [Concomitant]
  25. RENAGEL [Concomitant]
  26. NOVOLOG [Concomitant]
  27. ROSUVASTATIN (ROSUVASTATIN) [Concomitant]
  28. DILAUDID [Concomitant]
  29. DOPAMINE HCL [Concomitant]
  30. AVAPRO [Concomitant]
  31. SOLU-MEDROL [Concomitant]
  32. HYDRALAZINE HCL [Concomitant]

REACTIONS (12)
  - ALANINE AMINOTRANSFERASE INCREASED [None]
  - ASPARTATE AMINOTRANSFERASE INCREASED [None]
  - BLOOD ALKALINE PHOSPHATASE INCREASED [None]
  - DISSEMINATED INTRAVASCULAR COAGULATION [None]
  - DRUG TOXICITY [None]
  - HAEMOLYTIC ANAEMIA [None]
  - HYPERHIDROSIS [None]
  - KIDNEY TRANSPLANT REJECTION [None]
  - PETECHIAE [None]
  - PYREXIA [None]
  - THROMBOTIC THROMBOCYTOPENIC PURPURA [None]
  - TUBULOINTERSTITIAL NEPHRITIS [None]
